FAERS Safety Report 14105592 (Version 3)
Quarter: 2018Q3

REPORT INFORMATION
  Report Type: Spontaneous
  Country: US (occurrence: US)
  Receive Date: 20171018
  Receipt Date: 20180831
  Transmission Date: 20181010
  Serious: No
  Sender: FDA-Public Use
  Company Number: US-BIOGEN-2017BI00472902

PATIENT
  Sex: Female

DRUGS (4)
  1. TYSABRI [Suspect]
     Active Substance: NATALIZUMAB
     Indication: MULTIPLE SCLEROSIS
     Route: 065
     Dates: start: 20150626, end: 20170127
  2. TYSABRI [Suspect]
     Active Substance: NATALIZUMAB
     Route: 065
     Dates: start: 20170320
  3. TYSABRI [Suspect]
     Active Substance: NATALIZUMAB
     Route: 065
     Dates: start: 20170509
  4. TYSABRI [Suspect]
     Active Substance: NATALIZUMAB
     Dosage: INFUSED OVER AN HOUR
     Route: 042
     Dates: start: 201711

REACTIONS (6)
  - Anxiety [Not Recovered/Not Resolved]
  - Disturbance in attention [Unknown]
  - Post-traumatic stress disorder [Not Recovered/Not Resolved]
  - Depression [Not Recovered/Not Resolved]
  - Stress [Unknown]
  - Mental disorder [Not Recovered/Not Resolved]

NARRATIVE: CASE EVENT DATE: 2017
